FAERS Safety Report 9781171 (Version 3)
Quarter: 2014Q1

REPORT INFORMATION
  Report Type: Report from Study
  Country: US (occurrence: US)
  Receive Date: 20131224
  Receipt Date: 20140218
  Transmission Date: 20141002
  Serious: Yes (Other)
  Sender: FDA-Public Use
  Company Number: US-IPSEN BIOPHARMACEUTICALS, INC.-2013-5811

PATIENT
  Age: 70 Year
  Sex: Male
  Weight: 86.1 kg

DRUGS (8)
  1. SOMATULINE DEPOT INJECTION (90MG) [Suspect]
     Indication: GROWTH HORMONE-PRODUCING PITUITARY TUMOUR
     Dosage: 90 MG
     Route: 058
     Dates: start: 20130722
  2. SOMATULINE DEPOT INJECTION (90MG) [Suspect]
     Indication: THYROID STIMULATING HORMONE-PRODUCING PITUITARY TUMOUR
  3. SOMATULINE DEPOT INJECTION (90MG) [Suspect]
     Indication: SECRETORY ADENOMA OF PITUITARY
  4. METHIMAZOLE [Concomitant]
     Indication: PRODUCT USED FOR UNKNOWN INDICATION
     Dosage: NOT REPORTED
     Route: 065
  5. SERTRALINE [Concomitant]
     Indication: PRODUCT USED FOR UNKNOWN INDICATION
     Dosage: NOT REPORTED
     Route: 065
  6. METOPROLOL [Concomitant]
     Indication: PRODUCT USED FOR UNKNOWN INDICATION
     Dosage: NOT REPORTED
     Route: 065
  7. TAMSULIN [Concomitant]
     Indication: PRODUCT USED FOR UNKNOWN INDICATION
     Dosage: NOT REPORTED
     Route: 065
  8. COUMADIN [Concomitant]
     Indication: PRODUCT USED FOR UNKNOWN INDICATION
     Dosage: NOT REPORTED
     Route: 065

REACTIONS (1)
  - Neoplasm [Not Recovered/Not Resolved]
